FAERS Safety Report 4393067-0 (Version None)
Quarter: 2004Q3

REPORT INFORMATION
  Report Type: 
  Country: None (occurrence: None)
  Receive Date: 20040708
  Receipt Date: 20040702
  Transmission Date: 20050211
  Serious: Yes (Hospitalization, Disabling)
  Sender: FDA-Public Use
  Company Number: CH-ROCHE-373006

PATIENT
  Age: 58 Year
  Sex: Female

DRUGS (6)
  1. RIVOTRIL [Suspect]
     Indication: DELIRIUM
     Route: 048
     Dates: start: 20030615, end: 20030615
  2. LEXOTANIL [Suspect]
     Indication: DELIRIUM
     Route: 048
     Dates: start: 20030615
  3. HALDOL [Suspect]
     Indication: DELIRIUM
     Route: 048
     Dates: start: 19980615, end: 19990615
  4. ZYPREXA [Suspect]
     Indication: DELIRIUM
     Route: 048
     Dates: start: 20000615, end: 20020615
  5. DOGMATIL [Suspect]
     Indication: DELIRIUM
     Route: 048
     Dates: start: 20030615, end: 20030615
  6. ASPIRIN [Concomitant]
     Route: 048
     Dates: start: 20030615, end: 20030615

REACTIONS (2)
  - ERYTHEMA MULTIFORME [None]
  - FIXED ERUPTION [None]
